FAERS Safety Report 12873396 (Version 1)
Quarter: 2016Q4

REPORT INFORMATION
  Report Type: Spontaneous
  Country: US (occurrence: US)
  Receive Date: 20161021
  Receipt Date: 20161021
  Transmission Date: 20170207
  Serious: Yes (Other)
  Sender: FDA-Public Use
  Company Number: US-BAYER-2016-202482

PATIENT
  Age: 20 Year
  Sex: Female

DRUGS (2)
  1. MIRENA [Suspect]
     Active Substance: LEVONORGESTREL
     Indication: MENORRHAGIA
  2. MIRENA [Suspect]
     Active Substance: LEVONORGESTREL
     Indication: CONTRACEPTION
     Dosage: 20 MCG/24HR, CONT
     Route: 015
     Dates: start: 201308

REACTIONS (8)
  - Abortion spontaneous [None]
  - Weight increased [None]
  - Pregnancy with contraceptive device [None]
  - Acne [None]
  - Dysmenorrhoea [None]
  - Mood altered [None]
  - Procedural pain [None]
  - Drug ineffective [None]

NARRATIVE: CASE EVENT DATE: 201308
